FAERS Safety Report 4990701-9 (Version None)
Quarter: 2006Q2

REPORT INFORMATION
  Report Type: 
  Country: None (occurrence: None)
  Receive Date: 20060428
  Receipt Date: 20060418
  Transmission Date: 20061013
  Serious: Yes (Hospitalization)
  Sender: FDA-Public Use
  Company Number: SU-2006-004863

PATIENT
  Age: 75 Year
  Sex: Female

DRUGS (1)
  1. OLMETEC [Suspect]
     Indication: HYPERTENSION
     Dosage: 10 MG ONCE PO
     Route: 048
     Dates: start: 20060411, end: 20060411

REACTIONS (7)
  - ABASIA [None]
  - APHASIA [None]
  - BLISTER [None]
  - CONFUSIONAL STATE [None]
  - MASS [None]
  - SKIN DISCOLOURATION [None]
  - SKIN IRRITATION [None]
